FAERS Safety Report 17456204 (Version 1)
Quarter: 2020Q1

REPORT INFORMATION
  Report Type: Spontaneous
  Country: US (occurrence: US)
  Receive Date: 20200225
  Receipt Date: 20200225
  Transmission Date: 20200409
  Serious: Yes (Hospitalization, Other)
  Sender: FDA-Public Use
  Company Number: US-BAYER-2020-026994

PATIENT
  Age: 45 Year
  Sex: Male

DRUGS (1)
  1. ADEMPAS [Suspect]
     Active Substance: RIOCIGUAT
     Indication: PULMONARY ARTERIAL HYPERTENSION
     Dosage: 2 MG, TID
     Route: 048
     Dates: start: 20191230, end: 20200213

REACTIONS (8)
  - Oedema [Not Recovered/Not Resolved]
  - Catheter site extravasation [None]
  - Erythema [None]
  - Catheter site infection [None]
  - Cellulitis [None]
  - Catheter site discharge [None]
  - Catheter site pain [None]
  - Abdominal distension [None]

NARRATIVE: CASE EVENT DATE: 20200212
